FAERS Safety Report 8425378-3 (Version None)
Quarter: 2012Q2

REPORT INFORMATION
  Report Type: 
  Country: None (occurrence: None)
  Receive Date: 20120604
  Receipt Date: 20120524
  Transmission Date: 20120825
  Serious: Yes (Other)
  Sender: FDA-Public Use
  Company Number: CL-414-2012

PATIENT
  Age: 37 Year
  Sex: Female

DRUGS (2)
  1. HALOPERIOD UNK [Suspect]
     Indication: BIPOLAR DISORDER
     Dosage: 7.5 MG TWICE DAILY
  2. CARBAMAZEPINE [Concomitant]

REACTIONS (6)
  - OBSESSIVE-COMPULSIVE DISORDER [None]
  - LOGORRHOEA [None]
  - ABNORMAL BEHAVIOUR [None]
  - SLEEP DISORDER [None]
  - AGGRESSION [None]
  - MANIA [None]
